FAERS Safety Report 10573135 (Version 1)
Quarter: 2014Q4

REPORT INFORMATION
  Report Type: Spontaneous
  Country: CN (occurrence: None)
  Receive Date: 20141106
  Receipt Date: 20141106
  Transmission Date: 20150529
  Serious: Yes (Hospitalization)
  Sender: FDA-Public Use
  Company Number: VAL_03513_2014

PATIENT
  Age: 48 Year
  Sex: Male

DRUGS (1)
  1. CARBAMAZEPINE. [Suspect]
     Active Substance: CARBAMAZEPINE
     Indication: NEUROCYSTICERCOSIS
     Dosage: 1 DAY UNTIL NOT CONTINUING??NOT THE PRESCRIBED DOSAE

REACTIONS (16)
  - Multi-organ failure [None]
  - Aspartate aminotransferase increased [None]
  - Brain scan abnormal [None]
  - Musculoskeletal disorder [None]
  - Toxicity to various agents [None]
  - Loss of consciousness [None]
  - Hypopnoea [None]
  - Extensor plantar response [None]
  - Lung infiltration [None]
  - Coma [None]
  - Gastrointestinal sounds abnormal [None]
  - Rales [None]
  - Pupillary reflex impaired [None]
  - Muscular weakness [None]
  - Respiratory failure [None]
  - Blood creatinine increased [None]
